FAERS Safety Report 20394911 (Version 1)
Quarter: 2022Q1

REPORT INFORMATION
  Report Type: Report from Study
  Country: CA (occurrence: CA)
  Receive Date: 20220130
  Receipt Date: 20220130
  Transmission Date: 20220423
  Serious: Yes (Other)
  Sender: FDA-Public Use
  Company Number: CA-JAZZ-2018-CA-000686

PATIENT
  Age: 14 Year
  Sex: Male

DRUGS (1)
  1. DEFITELIO [Suspect]
     Active Substance: DEFIBROTIDE SODIUM
     Indication: Venoocclusive disease
     Dosage: 2.5 MG/KG, QID

REACTIONS (7)
  - Hepatomegaly [Unknown]
  - Ascites [Unknown]
  - Weight increased [Unknown]
  - Illness anxiety disorder [Unknown]
  - Jaundice [Unknown]
  - Blood bilirubin increased [Unknown]
  - Off label use [Unknown]
